FAERS Safety Report 8034047-3 (Version None)
Quarter: 2011Q4

REPORT INFORMATION
  Report Type: 
  Country: None (occurrence: None)
  Receive Date: 20111202
  Receipt Date: 20100520
  Transmission Date: 20120403
  Serious: Yes (Hospitalization)
  Sender: FDA-Public Use
  Company Number: 2010SP028335

PATIENT
  Age: 35 Year
  Sex: Female
  Weight: 105.6881 kg

DRUGS (5)
  1. ALBUTEROL [Concomitant]
  2. FLOVENT [Concomitant]
  3. FIORICET [Concomitant]
  4. NUVARING [Suspect]
     Indication: HAEMORRHAGE
     Dates: start: 20070215, end: 20080519
  5. NUVARING [Suspect]
     Indication: OVARIAN CYST
     Dates: start: 20070215, end: 20080519

REACTIONS (2)
  - PULMONARY EMBOLISM [None]
  - ANTIPHOSPHOLIPID ANTIBODIES [None]
